FAERS Safety Report 9785249 (Version 4)
Quarter: 2014Q3

REPORT INFORMATION
  Report Type: Report from Study
  Country: JP (occurrence: JP)
  Receive Date: 20131227
  Receipt Date: 20140912
  Transmission Date: 20150326
  Serious: Yes (Death, Life-Threatening, Hospitalization, Other)
  Sender: FDA-Public Use
  Company Number: JP-BAYER-2013-155933

PATIENT
  Age: 72 Year
  Sex: Male

DRUGS (7)
  1. KERATINAMIN [Concomitant]
     Active Substance: UREA
     Indication: DRUG TOXICITY PROPHYLAXIS
     Dosage: UNK
     Route: 061
     Dates: start: 20131125, end: 20140102
  2. STIVARGA [Suspect]
     Active Substance: REGORAFENIB
     Indication: RECTAL CANCER
     Dosage: 160 MG, QD
     Route: 048
     Dates: start: 20131125, end: 20131203
  3. FLUITRAN [Suspect]
     Active Substance: TRICHLORMETHIAZIDE
     Dosage: DAILY DOSE 1 MG
     Route: 048
     Dates: end: 20131207
  4. BLOPRESS [Suspect]
     Active Substance: CANDESARTAN CILEXETIL
     Dosage: DAILY DOSE 8 MG
     Route: 048
     Dates: end: 20131220
  5. DIGOSIN [Concomitant]
     Active Substance: DIGOXIN
     Dosage: DAILY DOSE .25 MG
     Dates: start: 20131229, end: 20131229
  6. HIRUDOID [Concomitant]
     Active Substance: GLYCOSAMINOGLYCANS
     Indication: DRUG TOXICITY PROPHYLAXIS
     Dosage: UNK
     Route: 061
     Dates: start: 20131125, end: 20140102
  7. DERMOVATE [Concomitant]
     Active Substance: CLOBETASOL
     Indication: DRUG TOXICITY PROPHYLAXIS
     Dosage: UNK
     Route: 061
     Dates: start: 20131125, end: 20140102

REACTIONS (18)
  - Dehydration [Recovered/Resolved]
  - Blood bilirubin increased [Not Recovered/Not Resolved]
  - Erythema [Unknown]
  - Systemic inflammatory response syndrome [Recovered/Resolved]
  - Pyrexia [Recovered/Resolved]
  - Rectal ulcer [Not Recovered/Not Resolved]
  - Dysphonia [Unknown]
  - Hyponatraemia [Not Recovered/Not Resolved]
  - Cardiomyopathy [Not Recovered/Not Resolved]
  - Hypertension [Recovered/Resolved]
  - Rectal cancer [Fatal]
  - Troponin T increased [Recovered/Resolved]
  - Diarrhoea [Recovered/Resolved]
  - C-reactive protein increased [Not Recovered/Not Resolved]
  - Decreased appetite [Not Recovered/Not Resolved]
  - Mucous membrane disorder [Recovered/Resolved]
  - Malaise [Not Recovered/Not Resolved]
  - Blood lactate dehydrogenase increased [Not Recovered/Not Resolved]

NARRATIVE: CASE EVENT DATE: 20131203
